FAERS Safety Report 4771021-4 (Version None)
Quarter: 2005Q3

REPORT INFORMATION
  Report Type: 
  Country: None (occurrence: None)
  Receive Date: 20050914
  Receipt Date: 20050830
  Transmission Date: 20060218
  Serious: Yes (Hospitalization)
  Sender: FDA-Public Use
  Company Number: 2005-01855

PATIENT
  Age: 51 Year
  Sex: Female
  Weight: 90 kg

DRUGS (7)
  1. VELCADE [Suspect]
     Indication: MULTIPLE MYELOMA
     Dosage: 2.60 MG 2/WK, INTRAVENOUS
     Route: 042
     Dates: start: 20050626, end: 20050811
  2. VELCADE [Suspect]
     Indication: MULTIPLE MYELOMA
     Dosage: 2.60 MG 2/WK, INTRAVENOUS
     Route: 042
     Dates: start: 20050816, end: 20050819
  3. AMLODIPINE [Concomitant]
  4. INSULIN [Concomitant]
  5. RANIDINE (RANITIDINE) [Concomitant]
  6. TRAMADOL HCL [Concomitant]
  7. VELCADE [Suspect]

REACTIONS (3)
  - ASCITES [None]
  - DISEASE PROGRESSION [None]
  - HEPATOMEGALY [None]
